FAERS Safety Report 4811380-7 (Version None)
Quarter: 2005Q4

REPORT INFORMATION
  Report Type: 
  Country: None (occurrence: None)
  Receive Date: 20051027
  Receipt Date: 20051013
  Transmission Date: 20060501
  Serious: Yes (Other)
  Sender: FDA-Public Use
  Company Number: 2005AP05363

PATIENT
  Sex: Male

DRUGS (2)
  1. MEROPEN [Suspect]
     Indication: CHOLANGITIS
     Route: 041
     Dates: start: 20050902, end: 20050905
  2. DALACIN [Concomitant]
     Route: 065

REACTIONS (1)
  - INTERSTITIAL LUNG DISEASE [None]
